FAERS Safety Report 25729234 (Version 1)
Quarter: 2025Q3

REPORT INFORMATION
  Report Type: Spontaneous
  Country: EU (occurrence: EU)
  Receive Date: 20250827
  Receipt Date: 20250827
  Transmission Date: 20251020
  Serious: Yes (Death, Other)
  Sender: CELLTRION
  Company Number: EU-BRISTOL-MYERS SQUIBB COMPANY-2025-094683

PATIENT

DRUGS (8)
  1. BEVACIZUMAB [Suspect]
     Active Substance: BEVACIZUMAB
     Indication: Medulloblastoma
     Dosage: 10 MILLIGRAM/KILOGRAM, EVERY 2 WEEKS
     Route: 042
  2. THALIDOMIDE [Suspect]
     Active Substance: THALIDOMIDE
     Indication: Medulloblastoma
     Route: 048
  3. ETOPOSIDE [Suspect]
     Active Substance: ETOPOSIDE
     Indication: Medulloblastoma
  4. ETOPOSIDE [Suspect]
     Active Substance: ETOPOSIDE
  5. FENOFIBRATE [Suspect]
     Active Substance: FENOFIBRATE
     Indication: Medulloblastoma
     Route: 048
  6. CELECOXIB [Suspect]
     Active Substance: CELECOXIB
     Indication: Medulloblastoma
     Route: 048
  7. CYCLOPHOSPHAMIDE [Suspect]
     Active Substance: CYCLOPHOSPHAMIDE
     Indication: Medulloblastoma
  8. CYTARABINE [Suspect]
     Active Substance: CYTARABINE
     Indication: Medulloblastoma

REACTIONS (8)
  - Death [Fatal]
  - Arachnoiditis [Unknown]
  - Neurotoxicity [Unknown]
  - Oesophageal candidiasis [Unknown]
  - Neutropenia [Unknown]
  - Lymphopenia [Unknown]
  - Off label use [Unknown]
  - Intentional product use issue [Unknown]
